FAERS Safety Report 16269405 (Version 2)
Quarter: 2019Q2

REPORT INFORMATION
  Report Type: Report from Study
  Country: US (occurrence: US)
  Receive Date: 20190503
  Receipt Date: 20190503
  Transmission Date: 20190711
  Serious: Yes (Other)
  Sender: FDA-Public Use
  Company Number: US-BAYER-2019-083552

PATIENT
  Age: 58 Year
  Sex: Female
  Weight: 72.56 kg

DRUGS (2)
  1. IRON [Concomitant]
     Active Substance: IRON
  2. STIVARGA [Suspect]
     Active Substance: REGORAFENIB
     Indication: COLON CANCER
     Dosage: 80 MG, QD
     Route: 048
     Dates: start: 201709

REACTIONS (8)
  - Neuropathy peripheral [None]
  - Mobility decreased [None]
  - Pain in extremity [None]
  - Oropharyngeal pain [Unknown]
  - Headache [None]
  - Hypoaesthesia [None]
  - Off label use [None]
  - Paraesthesia [None]

NARRATIVE: CASE EVENT DATE: 201709
